FAERS Safety Report 4736980-4 (Version None)
Quarter: 2005Q3

REPORT INFORMATION
  Report Type: 
  Country: None (occurrence: None)
  Receive Date: 20050803
  Receipt Date: 20050726
  Transmission Date: 20060218
  Serious: Yes (Death)
  Sender: FDA-Public Use
  Company Number: 05-07-1286

PATIENT
  Age: 54 Year
  Sex: Male

DRUGS (1)
  1. CLOZAPINE [Suspect]
     Indication: TARDIVE DYSKINESIA
     Dosage: 50-250MG QD ORAL
     Route: 048
     Dates: start: 20010501, end: 20050601

REACTIONS (1)
  - MULTI-ORGAN FAILURE [None]
